FAERS Safety Report 4409963-1 (Version None)
Quarter: 2004Q3

REPORT INFORMATION
  Report Type: 
  Country: None (occurrence: None)
  Receive Date: 20040726
  Receipt Date: 20040714
  Transmission Date: 20050211
  Serious: Yes (Life-Threatening)
  Sender: FDA-Public Use
  Company Number: FR-JNJFOC-20040703667

PATIENT
  Age: 26 Year
  Sex: Female

DRUGS (3)
  1. TOPALGIC (TRAMADOL HYDROCHLORIDE) [Suspect]
     Indication: BACK PAIN
     Dosage: 50 MG, ORAL
     Route: 048
     Dates: start: 20030101
  2. VIOXX [Concomitant]
  3. CELESTONE [Concomitant]

REACTIONS (4)
  - BLOOD GLUCOSE ABNORMAL [None]
  - KETOACIDOSIS [None]
  - PANCREATIC NECROSIS [None]
  - PANCREATITIS ACUTE [None]
